FAERS Safety Report 8973063 (Version 1)
Quarter: 2012Q4

REPORT INFORMATION
  Report Type: 
  Country: US (occurrence: US)
  Receive Date: 20121218
  Receipt Date: 20121218
  Transmission Date: 20130627
  Serious: No
  Sender: FDA-Public Use
  Company Number: US-BRISTOL-MYERS SQUIBB COMPANY-16980740

PATIENT
  Sex: Female

DRUGS (2)
  1. ABILIFY [Suspect]
     Indication: BIPOLAR DISORDER
     Dosage: 5mg she cut in half for 2 wks,incr to 10mg,swtcd her to 5mg,dose was dec to 2mg,2.5mg by cut 5mg
  2. TOPAMAX [Concomitant]

REACTIONS (3)
  - Feeling abnormal [Unknown]
  - Hypomania [Unknown]
  - Weight increased [Unknown]
